FAERS Safety Report 9140082 (Version 1)
Quarter: 2013Q1

REPORT INFORMATION
  Report Type: Spontaneous
  Country: DK (occurrence: DK)
  Receive Date: 20130305
  Receipt Date: 20130305
  Transmission Date: 20140127
  Serious: Yes (Hospitalization, Other)
  Sender: FDA-Public Use
  Company Number: PHHY2013DK018611

PATIENT
  Age: 22 Year
  Sex: Female

DRUGS (8)
  1. OLANZAPINE [Suspect]
     Dosage: 10 TO 15 MG AS NEEDED
  2. XEPLION [Suspect]
     Indication: SCHIZOPHRENIA, DISORGANISED TYPE
     Dosage: 50 MG, UNK
     Route: 030
     Dates: start: 20120605
  3. XEPLION [Suspect]
     Dosage: 75 MG, UNK
     Route: 030
     Dates: start: 20120626
  4. XEPLION [Suspect]
     Dosage: 75 MG, UNK
     Route: 030
     Dates: start: 20120725
  5. XEPLION [Suspect]
     Dosage: 100 MG, UNK
     Route: 030
     Dates: start: 20120816
  6. RISPERDAL CONSTA [Suspect]
     Indication: SCHIZOPHRENIA, DISORGANISED TYPE
     Dosage: 25 MG, UNK
     Route: 030
     Dates: start: 20120202, end: 20120522
  7. RISPERDAL CONSTA [Suspect]
     Dosage: 25 MG, UNK
     Route: 030
     Dates: start: 20120910
  8. ZYPREXA [Suspect]
     Dosage: 10 TO 15 MG AS NEEDED

REACTIONS (4)
  - Suicidal ideation [Recovered/Resolved]
  - Persecutory delusion [Recovering/Resolving]
  - Hallucination [Recovering/Resolving]
  - Psychotic disorder [Unknown]
